FAERS Safety Report 7456837-8 (Version None)
Quarter: 2011Q2

REPORT INFORMATION
  Report Type: 
  Country: None (occurrence: None)
  Receive Date: 20110504
  Receipt Date: 20110427
  Transmission Date: 20111010
  Serious: No
  Sender: FDA-Public Use
  Company Number: US-BIOGENIDEC-2010BI042343

PATIENT
  Sex: Male

DRUGS (10)
  1. LYRICA [Concomitant]
     Indication: PARAESTHESIA
     Route: 048
  2. LAMICTAL [Concomitant]
     Indication: PARAESTHESIA
     Route: 048
  3. ADDERALL 10 [Concomitant]
     Indication: FATIGUE
  4. TYSABRI [Suspect]
     Indication: MULTIPLE SCLEROSIS
     Route: 042
     Dates: start: 20071113
  5. PERCOCET [Concomitant]
  6. LYRICA [Concomitant]
  7. AMBIEN [Concomitant]
  8. LIPITOR [Concomitant]
  9. XANAX [Concomitant]
  10. VITAMIN D [Concomitant]

REACTIONS (10)
  - INSOMNIA [None]
  - ATROPHY [None]
  - MUSCULAR WEAKNESS [None]
  - PAIN IN EXTREMITY [None]
  - BURNING SENSATION [None]
  - ERECTILE DYSFUNCTION [None]
  - GAIT SPASTIC [None]
  - COORDINATION ABNORMAL [None]
  - PARAESTHESIA [None]
  - DYSAESTHESIA [None]
